FAERS Safety Report 7211568-4 (Version None)
Quarter: 2010Q4

REPORT INFORMATION
  Report Type: 
  Country: None (occurrence: None)
  Receive Date: 20101228
  Receipt Date: 20101215
  Transmission Date: 20110411
  Serious: Yes (Other)
  Sender: FDA-Public Use
  Company Number: 018487

PATIENT
  Age: 44 Year
  Sex: Female

DRUGS (2)
  1. KEPPRA [Suspect]
     Indication: EPILEPSY
     Dosage: 2000 MG ORAL, (1000 MG 20X/DAY ORAL
     Route: 048
     Dates: start: 20100101, end: 20100101
  2. KEPPRA [Suspect]
     Indication: EPILEPSY
     Dosage: 2000 MG ORAL, (1000 MG 20X/DAY ORAL
     Route: 048
     Dates: start: 20100801, end: 20100801

REACTIONS (4)
  - INCORRECT DOSE ADMINISTERED [None]
  - LOSS OF CONSCIOUSNESS [None]
  - SUICIDE ATTEMPT [None]
  - VOMITING [None]
